FAERS Safety Report 20323487 (Version 2)
Quarter: 2022Q1

REPORT INFORMATION
  Report Type: Spontaneous
  Country: PT (occurrence: PT)
  Receive Date: 20220111
  Receipt Date: 20220315
  Transmission Date: 20220423
  Serious: Yes (Hospitalization, Other)
  Sender: FDA-Public Use
  Company Number: PT-VALIDUS PHARMACEUTICALS LLC-PT-VDP-2021-014900

PATIENT

DRUGS (2)
  1. FUROSEMIDE [Suspect]
     Active Substance: FUROSEMIDE
     Indication: Hypertension
     Dosage: UNK
     Route: 065
  2. OMEPRAZOLE [Suspect]
     Active Substance: OMEPRAZOLE
     Indication: Dyspepsia
     Dosage: UNK
     Route: 065

REACTIONS (10)
  - Parkinsonism [Recovered/Resolved]
  - Diverticulum intestinal [Unknown]
  - Intestinal obstruction [Unknown]
  - Intention tremor [Unknown]
  - Altered state of consciousness [Unknown]
  - Musculoskeletal stiffness [Unknown]
  - Muscle contractions involuntary [Unknown]
  - Agitation [Unknown]
  - Seizure [Unknown]
  - Vomiting [Unknown]
